FAERS Safety Report 9152659 (Version 1)
Quarter: 2013Q1

REPORT INFORMATION
  Report Type: Spontaneous
  Country: PL (occurrence: PL)
  Receive Date: 20130308
  Receipt Date: 20130308
  Transmission Date: 20140127
  Serious: Yes (Other)
  Sender: FDA-Public Use
  Company Number: PL-BAXTER-2013BAX008149

PATIENT
  Age: 31 Year
  Sex: Female
  Weight: 49 kg

DRUGS (2)
  1. ENDOXAN [Suspect]
     Indication: BREAST CANCER
     Route: 042
     Dates: start: 20130131, end: 20130131
  2. DOCETAXEL [Suspect]
     Indication: BREAST CANCER
     Route: 042
     Dates: start: 20130131, end: 20130131

REACTIONS (4)
  - Flushing [Unknown]
  - Restlessness [Unknown]
  - Dyspnoea [Unknown]
  - Blood pressure increased [Unknown]
